FAERS Safety Report 25006549 (Version 1)
Quarter: 2025Q1

REPORT INFORMATION
  Report Type: Report from Study
  Country: US (occurrence: US)
  Receive Date: 20250225
  Receipt Date: 20250225
  Transmission Date: 20250409
  Serious: Yes (Other)
  Sender: ABBVIE
  Company Number: US-ABBVIE-6129197

PATIENT
  Age: 69 Year
  Sex: Male
  Weight: 90.718 kg

DRUGS (3)
  1. HUMIRA [Suspect]
     Active Substance: ADALIMUMAB
     Indication: Crohn^s disease
     Dosage: CITRATE FREE?FORM STRENGTH: 40 MILLIGRAM
     Route: 058
     Dates: start: 20240221, end: 202501
  2. HUMIRA [Suspect]
     Active Substance: ADALIMUMAB
     Dosage: CITRATE FREE?FORM STRENGTH: 40 MILLIGRAM
     Route: 058
     Dates: start: 202502, end: 202502
  3. TRULICITY [Concomitant]
     Active Substance: DULAGLUTIDE
     Indication: Crohn^s disease

REACTIONS (1)
  - Venous occlusion [Recovering/Resolving]

NARRATIVE: CASE EVENT DATE: 20250101
